FAERS Safety Report 6344468-2 (Version None)
Quarter: 2009Q3

REPORT INFORMATION
  Report Type: 
  Country: None (occurrence: None)
  Receive Date: 20090903
  Receipt Date: 20090824
  Transmission Date: 20100115
  Serious: Yes (Other)
  Sender: FDA-Public Use
  Company Number: 231304K09USA

PATIENT
  Age: 51 Year
  Sex: Female
  Weight: 59 kg

DRUGS (1)
  1. REBIF [Suspect]
     Indication: MULTIPLE SCLEROSIS
     Dosage: 44 MCG, 1 IN 2 DAYS SUBCUTANEOUS
     Route: 058
     Dates: start: 20040112

REACTIONS (2)
  - BLOOD CHOLESTEROL INCREASED [None]
  - BREAST CANCER FEMALE [None]
